FAERS Safety Report 4721119-1 (Version None)
Quarter: 2005Q3

REPORT INFORMATION
  Report Type: 
  Country: None (occurrence: None)
  Receive Date: 20050719
  Receipt Date: 20041118
  Transmission Date: 20060218
  Serious: Yes (Hospitalization, Other)
  Sender: FDA-Public Use
  Company Number: 2004097697

PATIENT
  Age: 76 Year
  Sex: Female
  Weight: 77.1115 kg

DRUGS (3)
  1. CELEBREX [Suspect]
     Indication: ARTHRITIS
     Dosage: ORAL
     Route: 048
  2. ATORVASTATIN CALCIUM [Concomitant]
  3. VITAMINS (VITAMINS) [Concomitant]

REACTIONS (3)
  - DIARRHOEA [None]
  - SHOULDER PAIN [None]
  - STAPHYLOCOCCAL INFECTION [None]
